FAERS Safety Report 5346614-6 (Version None)
Quarter: 2007Q2

REPORT INFORMATION
  Report Type: 
  Country: None (occurrence: None)
  Receive Date: 20070604
  Receipt Date: 20070524
  Transmission Date: 20071010
  Serious: Yes (Hospitalization)
  Sender: FDA-Public Use
  Company Number: E2090-00242-CLI-JP

PATIENT
  Age: 70 Year
  Sex: Male

DRUGS (20)
  1. ZONISAMIDE [Suspect]
     Indication: PARKINSON'S DISEASE
     Dosage: DOUBLE BLIND, 1 IN 1 D, ORAL
     Route: 048
     Dates: start: 20070508
  2. CABERGOLINE [Concomitant]
  3. MADOPAR             (MADOPAR) [Concomitant]
  4. SELEGILINE HYDROCHLORIDE                  (SELEGILINE HYDROCHLORIDE) [Concomitant]
  5. PERMAX [Concomitant]
  6. SYMMETREL [Concomitant]
  7. ASPARA K           (ASPARTATE POTASSIUM) [Concomitant]
  8. :MAGNESIUM OXIDE              (MAGNESIUM OXIDE) [Concomitant]
  9. NEOPHAGEN C              (GLYCYRRHIZINATE POTASSIUM) [Concomitant]
  10. MARZULENE S                      (MARZULENE S) [Concomitant]
  11. ALDACTONE [Concomitant]
  12. RISUMIC                   (AMEZINIUM METILSULFATE) [Concomitant]
  13. AMOBAN                             (ZOPICLONE) [Concomitant]
  14. AZULENE         (AZULENE) [Concomitant]
  15. XALATAN [Concomitant]
  16. ... [Concomitant]
  17. TIMOLOL MALEATE [Concomitant]
  18. FLOMOX            (CEFCAPENE PIVOXIL  HYDROCHLORIDE) [Concomitant]
  19. PL            (COLD CAPSULES) [Concomitant]
  20. LOXONIN       (LOXOPROFEN SODIUM) [Concomitant]

REACTIONS (7)
  - NASOPHARYNGITIS [None]
  - PYREXIA [None]
  - RASH [None]
  - RASH ERYTHEMATOUS [None]
  - SKIN REACTION [None]
  - SPUTUM DISCOLOURED [None]
  - VIRAL INFECTION [None]
